FAERS Safety Report 25982833 (Version 1)
Quarter: 2025Q4

REPORT INFORMATION
  Report Type: Report from Study
  Country: GB (occurrence: GB)
  Receive Date: 20251031
  Receipt Date: 20251031
  Transmission Date: 20260117
  Serious: Yes (Other)
  Sender: AMGEN
  Company Number: GB-AMGEN-GBRSL2025210958

PATIENT
  Age: 68 Year
  Sex: Female

DRUGS (1)
  1. USTEKINUMAB [Suspect]
     Active Substance: USTEKINUMAB
     Indication: Crohn^s disease
     Dosage: 90 MILLIGRAM, Q8WK
     Route: 058
     Dates: start: 20250819

REACTIONS (5)
  - Cardiac failure [Unknown]
  - Illness [Recovered/Resolved]
  - Dyspnoea exertional [Recovered/Resolved]
  - Feeling hot [Recovered/Resolved]
  - Therapy interrupted [Unknown]

NARRATIVE: CASE EVENT DATE: 20250101
